FAERS Safety Report 5865851-5 (Version None)
Quarter: 2008Q3

REPORT INFORMATION
  Report Type: 
  Country: None (occurrence: None)
  Receive Date: 20080829
  Receipt Date: 20080819
  Transmission Date: 20090109
  Serious: Yes (Other)
  Sender: FDA-Public Use
  Company Number: CA-ELI_LILLY_AND_COMPANY-CA200808003960

PATIENT
  Age: 64 Year
  Sex: Female

DRUGS (5)
  1. FORTEO [Suspect]
     Indication: OSTEOPOROSIS
     Dosage: 20 UG, DAILY (1/D)
     Route: 058
     Dates: start: 20070326
  2. SYNTHROID [Concomitant]
  3. ATIVAN [Concomitant]
  4. CALCIUM                                 /N/A/ [Concomitant]
  5. VITAMIN D [Concomitant]

REACTIONS (1)
  - INTRAOCULAR MELANOMA [None]
